FAERS Safety Report 6355433-3 (Version None)
Quarter: 2009Q3

REPORT INFORMATION
  Report Type: 
  Country: None (occurrence: None)
  Receive Date: 20090914
  Receipt Date: 20090903
  Transmission Date: 20100115
  Serious: Yes (Other)
  Sender: FDA-Public Use
  Company Number: PHHY2009MX19910

PATIENT
  Age: 59 Year
  Sex: Female

DRUGS (3)
  1. DIOVAN [Suspect]
     Indication: HYPERTENSION
     Dosage: 1 DF (160 MG) PER DAY
     Route: 048
     Dates: start: 20060201
  2. EUTIROX [Concomitant]
     Indication: THYROID DISORDER
     Dosage: 2 TABLET PER DAY
  3. AMOXIL [Concomitant]

REACTIONS (4)
  - CHILLS [None]
  - HEADACHE [None]
  - HEPATITIS C [None]
  - NAUSEA [None]
